FAERS Safety Report 12342745 (Version 1)
Quarter: 2016Q2

REPORT INFORMATION
  Report Type: Spontaneous
  Country: JP (occurrence: JP)
  Receive Date: 20160506
  Receipt Date: 20160506
  Transmission Date: 20160815
  Serious: Yes (Other)
  Sender: FDA-Public Use
  Company Number: JP-PFIZER INC-2016234524

PATIENT
  Age: 76 Year
  Sex: Male

DRUGS (2)
  1. LOXOPROFEN [Concomitant]
     Active Substance: LOXOPROFEN
  2. AMPICILLIN SODIUM/SULBACTAM SODIUM [Suspect]
     Active Substance: AMPICILLIN SODIUM\SULBACTAM SODIUM
     Indication: ARTHRITIS
     Dosage: 3 G, DAILY
     Route: 042

REACTIONS (1)
  - Enterocolitis haemorrhagic [Recovered/Resolved]
